FAERS Safety Report 15493255 (Version 1)
Quarter: 2018Q4

REPORT INFORMATION
  Report Type: Spontaneous
  Country: NP (occurrence: NP)
  Receive Date: 20181012
  Receipt Date: 20181012
  Transmission Date: 20190205
  Serious: Yes (Death, Hospitalization)
  Sender: FDA-Public Use
  Company Number: NP-MYLANLABS-2018M1073346

PATIENT
  Age: 17 Year
  Sex: Female

DRUGS (5)
  1. DICLOFENAC SODIUM. [Concomitant]
     Active Substance: DICLOFENAC SODIUM
     Indication: VOMITING
  2. DICLOFENAC SODIUM. [Concomitant]
     Active Substance: DICLOFENAC SODIUM
     Indication: ABDOMINAL PAIN
     Route: 065
  3. PHENYTOIN. [Suspect]
     Active Substance: PHENYTOIN
     Indication: GENERALISED TONIC-CLONIC SEIZURE
     Route: 065
  4. HYOSCINE [Suspect]
     Active Substance: SCOPOLAMINE
     Indication: ABDOMINAL PAIN
     Route: 065
  5. HYOSCINE [Suspect]
     Active Substance: SCOPOLAMINE
     Indication: VOMITING

REACTIONS (8)
  - Condition aggravated [Fatal]
  - Porphyria acute [Fatal]
  - Inappropriate antidiuretic hormone secretion [Unknown]
  - Pneumonia aspiration [Unknown]
  - Hyponatraemia [Unknown]
  - Epilepsy [Unknown]
  - Respiratory failure [Fatal]
  - Coma [Unknown]
